FAERS Safety Report 14563973 (Version 1)
Quarter: 2018Q1

REPORT INFORMATION
  Report Type: Spontaneous
  Country: US (occurrence: US)
  Receive Date: 20180222
  Receipt Date: 20180222
  Transmission Date: 20180509
  Serious: No
  Sender: FDA-Public Use
  Company Number: US-ELI_LILLY_AND_COMPANY-US201802008605

PATIENT
  Sex: Male

DRUGS (1)
  1. TRULICITY [Suspect]
     Active Substance: DULAGLUTIDE
     Indication: TYPE 2 DIABETES MELLITUS
     Dosage: 0.75 MG, UNKNOWN
     Route: 065

REACTIONS (6)
  - Insomnia [Recovered/Resolved]
  - Energy increased [Recovered/Resolved]
  - Breath odour [Not Recovered/Not Resolved]
  - Weight decreased [Recovered/Resolved]
  - Hyperchlorhydria [Recovered/Resolved]
  - Injection site mass [Recovered/Resolved]
